FAERS Safety Report 25379369 (Version 1)
Quarter: 2025Q2

REPORT INFORMATION
  Report Type: Spontaneous
  Country: US (occurrence: None)
  Receive Date: 20250529
  Receipt Date: 20250529
  Transmission Date: 20250716
  Serious: Yes (Hospitalization, Other)
  Sender: FDA-CTU
  Company Number: None

PATIENT
  Age: 30 Year
  Sex: Male
  Weight: 97 kg

DRUGS (1)
  1. RISPERIDONE [Suspect]
     Active Substance: RISPERIDONE

REACTIONS (6)
  - Withdrawal syndrome [None]
  - Mania [None]
  - Insomnia [None]
  - Hyperacusis [None]
  - Emotional disorder [None]
  - Cognitive disorder [None]

NARRATIVE: CASE EVENT DATE: 20191101
